FAERS Safety Report 5383039-1 (Version None)
Quarter: 2007Q3

REPORT INFORMATION
  Report Type: 
  Country: None (occurrence: None)
  Receive Date: 20070705
  Receipt Date: 20070625
  Transmission Date: 20080115
  Serious: Yes (Hospitalization, Disabling, Other)
  Sender: FDA-Public Use
  Company Number: TUK2007A00042

PATIENT
  Age: 70 Year
  Sex: Female

DRUGS (8)
  1. ACTOS [Suspect]
     Indication: DIABETES MELLITUS
     Dosage: 15 MG
     Route: 048
     Dates: start: 20070310, end: 20070420
  2. ATENOLOL [Concomitant]
  3. GLICLAZIDE (GLICLAZIDE) [Concomitant]
  4. IRBESARTAN [Concomitant]
  5. METFORMIN (METFORMIN) [Concomitant]
  6. NICORANDIL (NICORANDIL) [Concomitant]
  7. SIMVASTATIN [Concomitant]
  8. ASPIRIN [Concomitant]

REACTIONS (2)
  - FALL [None]
  - HUMERUS FRACTURE [None]
